FAERS Safety Report 12404134 (Version 1)
Quarter: 2016Q2

REPORT INFORMATION
  Report Type: Report from Study
  Country: US (occurrence: US)
  Receive Date: 20160525
  Receipt Date: 20160525
  Transmission Date: 20160815
  Serious: Yes (Other)
  Sender: FDA-Public Use
  Company Number: US-ABBVIE-16K-163-1630472-00

PATIENT
  Age: 34 Year
  Sex: Female

DRUGS (1)
  1. HUMIRA [Suspect]
     Active Substance: ADALIMUMAB
     Indication: CROHN^S DISEASE
     Route: 058

REACTIONS (7)
  - Ear pain [Unknown]
  - Sinusitis [Unknown]
  - Deafness bilateral [Not Recovered/Not Resolved]
  - Ear discomfort [Unknown]
  - Otorrhoea [Unknown]
  - Ear infection [Unknown]
  - Upper respiratory tract infection [Unknown]
